FAERS Safety Report 15711901 (Version 1)
Quarter: 2018Q4

REPORT INFORMATION
  Report Type: Spontaneous
  Country: FR (occurrence: FR)
  Receive Date: 20181212
  Receipt Date: 20181212
  Transmission Date: 20190205
  Serious: Yes (Life-Threatening)
  Sender: FDA-Public Use
  Company Number: FR-SUN PHARMACEUTICAL INDUSTRIES LTD-2018RR-193251

PATIENT
  Age: 54 Year
  Sex: Female

DRUGS (4)
  1. XEPLION 100 MG, SUSPENSION INJECTABLE A LIBERATION PROLONGEE [Suspect]
     Active Substance: PALIPERIDONE
     Indication: SCHIZOPHRENIA
     Dosage: ()
     Route: 030
     Dates: start: 201810
  2. MOVICOL [Suspect]
     Active Substance: POLYETHYLENE GLYCOL 3350\POTASSIUM CHLORIDE\SODIUM BICARBONATE\SODIUM CHLORIDE
     Indication: PRODUCT USED FOR UNKNOWN INDICATION
     Dosage: AS NECESSARY
     Route: 048
     Dates: start: 20181016
  3. DESLORATADINE. [Suspect]
     Active Substance: DESLORATADINE
     Indication: PRODUCT USED FOR UNKNOWN INDICATION
     Dosage: AS NECESSARY
     Route: 048
     Dates: start: 20181016
  4. VALIUM [Suspect]
     Active Substance: DIAZEPAM
     Indication: PRODUCT USED FOR UNKNOWN INDICATION
     Dosage: 40 MILLIGRAM, QD
     Route: 065
     Dates: start: 20181016

REACTIONS (6)
  - Pyrexia [Recovered/Resolved]
  - Pulmonary embolism [Recovering/Resolving]
  - Terminal dribbling [Recovered/Resolved]
  - Tachycardia [Recovered/Resolved]
  - Gait disturbance [Recovering/Resolving]
  - Parkinsonism [Recovering/Resolving]

NARRATIVE: CASE EVENT DATE: 20181023
